FAERS Safety Report 4673400-2 (Version None)
Quarter: 2005Q2

REPORT INFORMATION
  Report Type: 
  Country: None (occurrence: None)
  Receive Date: 20050523
  Receipt Date: 20050510
  Transmission Date: 20051028
  Serious: Yes (Hospitalization)
  Sender: FDA-Public Use
  Company Number: 2005072928

PATIENT
  Sex: Female

DRUGS (1)
  1. XANAX [Suspect]
     Indication: PANIC DISORDER
     Dosage: 10 MG (0.5 MG)
     Route: 048

REACTIONS (3)
  - DELIRIUM [None]
  - OVERDOSE [None]
  - PSYCHOTIC DISORDER [None]
